FAERS Safety Report 25958395 (Version 1)
Quarter: 2025Q4

REPORT INFORMATION
  Report Type: Report from Study
  Country: US (occurrence: US)
  Receive Date: 20251024
  Receipt Date: 20251024
  Transmission Date: 20260118
  Serious: Yes (Other)
  Sender: ABBVIE
  Company Number: US-ABBVIE-6373907

PATIENT
  Age: 85 Year
  Sex: Male

DRUGS (1)
  1. LUPRON DEPOT [Suspect]
     Active Substance: LEUPROLIDE ACETATE
     Indication: Prostate cancer
     Route: 065
     Dates: start: 20230621, end: 20251008

REACTIONS (10)
  - Neoplasm malignant [Not Recovered/Not Resolved]
  - Dyspnoea [Not Recovered/Not Resolved]
  - Fall [Recovering/Resolving]
  - Radiation injury [Recovering/Resolving]
  - Contusion [Recovering/Resolving]
  - Arthralgia [Recovering/Resolving]
  - Musculoskeletal chest pain [Recovering/Resolving]
  - Back pain [Not Recovered/Not Resolved]
  - Prostatic specific antigen decreased [Unknown]
  - Arthralgia [Not Recovered/Not Resolved]

NARRATIVE: CASE EVENT DATE: 20250101
